FAERS Safety Report 4704943-0 (Version None)
Quarter: 2005Q3

REPORT INFORMATION
  Report Type: 
  Country: None (occurrence: None)
  Receive Date: 20050701
  Receipt Date: 20050620
  Transmission Date: 20060218
  Serious: Yes (Other)
  Sender: FDA-Public Use
  Company Number: NL-BRISTOL-MYERS SQUIBB COMPANY-13015862

PATIENT
  Age: 41 Year
  Sex: Female

DRUGS (3)
  1. FUNGIZONE [Suspect]
     Indication: FUNGAL INFECTION
     Route: 048
  2. CARBAMAZEPINE [Concomitant]
  3. COMBIVENT [Concomitant]

REACTIONS (1)
  - PETIT MAL EPILEPSY [None]
